FAERS Safety Report 4475369-2 (Version None)
Quarter: 2004Q4

REPORT INFORMATION
  Report Type: 
  Country: None (occurrence: None)
  Receive Date: 20041015
  Receipt Date: 20041005
  Transmission Date: 20050328
  Serious: Yes (Hospitalization)
  Sender: FDA-Public Use
  Company Number: DE-JNJFOC-20041002610

PATIENT
  Sex: Female
  Weight: 68 kg

DRUGS (10)
  1. DURAGESIC [Suspect]
     Route: 062
  2. DURAGESIC [Suspect]
     Indication: PAIN
     Route: 062
  3. PIRACETAM [Interacting]
     Indication: DEMENTIA
     Route: 049
  4. KALINOR [Concomitant]
     Route: 049
  5. PANTOPRAZOLE SODIUM [Concomitant]
     Indication: PROPHYLAXIS
     Route: 049
  6. PROTAPHANE [Concomitant]
     Indication: DIABETES MELLITUS
     Route: 058
  7. SUMMAVIT [Concomitant]
     Route: 049
  8. TOREM [Concomitant]
     Route: 049
  9. ZYVOXID [Concomitant]
     Route: 049
  10. ACTRAPID [Concomitant]
     Indication: DIABETES MELLITUS
     Route: 058

REACTIONS (6)
  - ANOREXIA [None]
  - BLOOD PRESSURE DIASTOLIC DECREASED [None]
  - DRUG INTERACTION [None]
  - FATIGUE [None]
  - HYPOGLYCAEMIA [None]
  - SOMNOLENCE [None]
